FAERS Safety Report 23390126 (Version 1)
Quarter: 2024Q1

REPORT INFORMATION
  Report Type: Report from Study
  Country: CA (occurrence: CA)
  Receive Date: 20240111
  Receipt Date: 20240111
  Transmission Date: 20240409
  Serious: Yes (Other)
  Sender: FDA-Public Use
  Company Number: CA-SANDOZ-SDZ2024CA001487

PATIENT
  Sex: Male

DRUGS (1)
  1. ERELZI [Suspect]
     Active Substance: ETANERCEPT-SZZS
     Indication: Psoriatic arthropathy
     Dosage: 50 MG (PRE FILLED PEN)
     Route: 058
     Dates: start: 20230601

REACTIONS (4)
  - Psoriatic arthropathy [Unknown]
  - Cerebrovascular accident [Unknown]
  - Obsessive-compulsive disorder [Unknown]
  - Frustration tolerance decreased [Unknown]
